FAERS Safety Report 17444006 (Version 2)
Quarter: 2020Q1

REPORT INFORMATION
  Report Type: Spontaneous
  Country: AT (occurrence: AT)
  Receive Date: 20200221
  Receipt Date: 20200317
  Transmission Date: 20200409
  Serious: Yes (Death, Life-Threatening, Other)
  Sender: FDA-Public Use
  Company Number: AT-AMGEN-AUTSP2020024718

PATIENT

DRUGS (9)
  1. IFOSFAMIDE. [Suspect]
     Active Substance: IFOSFAMIDE
     Indication: NON-HODGKIN^S LYMPHOMA
     Dosage: 2000 MILLIGRAM/SQ. METER (DAY 15 TO 17)
     Route: 042
  2. METHOTREXATE. [Suspect]
     Active Substance: METHOTREXATE
     Indication: NON-HODGKIN^S LYMPHOMA
     Dosage: 800 MILLIGRAM/SQ. METER,  DAY 22
     Route: 042
  3. EPIRUBICINE [Suspect]
     Active Substance: EPIRUBICIN
     Indication: NON-HODGKIN^S LYMPHOMA
     Dosage: 70 MILLIGRAM/SQ. METER DAY 1
     Route: 042
  4. PREDNISOLONE. [Suspect]
     Active Substance: PREDNISOLONE
     Indication: NON-HODGKIN^S LYMPHOMA
     Dosage: 100 MILLIGRAM, DAY 1 TO 5
     Route: 048
  5. DEXAMETHASONE. [Suspect]
     Active Substance: DEXAMETHASONE
     Indication: NON-HODGKIN^S LYMPHOMA
     Dosage: 40 MILLIGRAM, DAY 15 TO 17
     Route: 065
  6. CYCLOPHOSPHAMIDE. [Suspect]
     Active Substance: CYCLOPHOSPHAMIDE
     Indication: NON-HODGKIN^S LYMPHOMA
     Dosage: 750 MILLIGRAM/SQ. METER, DAY 1
     Route: 042
  7. ETOPOSIDE. [Suspect]
     Active Substance: ETOPOSIDE
     Indication: NON-HODGKIN^S LYMPHOMA
     Dosage: 100 MILLIGRAM/SQ. METER, DAYS 15 TO 17
     Route: 042
  8. VINCRISTINE [Suspect]
     Active Substance: VINCRISTINE
     Indication: NON-HODGKIN^S LYMPHOMA
     Dosage: 1.4 MILLIGRAM/SQ. METER (DAY 1 AND 8)
     Route: 042
  9. FILGRASTIM [Suspect]
     Active Substance: FILGRASTIM
     Indication: NON-HODGKIN^S LYMPHOMA
     Dosage: UNK DAYS2-7, 9-12, 18-21, AND 23-28
     Route: 065

REACTIONS (17)
  - Vomiting [Unknown]
  - Disease recurrence [Unknown]
  - Alopecia [Unknown]
  - Platelet count abnormal [Unknown]
  - Stomatitis [Unknown]
  - Nausea [Unknown]
  - Hepatic failure [Fatal]
  - Neutrophil count abnormal [Unknown]
  - Infection [Unknown]
  - Haematotoxicity [Unknown]
  - Neurotoxicity [Unknown]
  - Neuropathy peripheral [Unknown]
  - Skin toxicity [Unknown]
  - Pyrexia [Unknown]
  - Malignant neoplasm progression [Fatal]
  - Pneumonia [Fatal]
  - Haemoglobin abnormal [Unknown]
